FAERS Safety Report 7344693-8 (Version None)
Quarter: 2011Q1

REPORT INFORMATION
  Report Type: 
  Country: None (occurrence: None)
  Receive Date: 20110310
  Receipt Date: 20110302
  Transmission Date: 20110831
  Serious: Yes (Hospitalization, Disabling)
  Sender: FDA-Public Use
  Company Number: US-MERCK-1012USA01882

PATIENT
  Sex: Female

DRUGS (4)
  1. FOSAMAX [Suspect]
     Indication: OSTEOPOROSIS PROPHYLAXIS
     Route: 048
     Dates: start: 19990101
  2. CENTRUM [Concomitant]
     Route: 048
  3. FOSAMAX [Suspect]
     Indication: OSTEOPENIA
     Route: 048
     Dates: start: 19990101
  4. CENTRUM SILVER [Concomitant]
     Route: 048

REACTIONS (7)
  - OSTEOPOROSIS [None]
  - STRESS FRACTURE [None]
  - LOW TURNOVER OSTEOPATHY [None]
  - GINGIVAL DISORDER [None]
  - FEMUR FRACTURE [None]
  - SINUS DISORDER [None]
  - HYPERCHOLESTEROLAEMIA [None]
